FAERS Safety Report 19648104 (Version 1)
Quarter: 2021Q3

REPORT INFORMATION
  Report Type: Report from Study
  Country: CA (occurrence: CA)
  Receive Date: 20210802
  Receipt Date: 20210802
  Transmission Date: 20211014
  Serious: Yes (Hospitalization)
  Sender: FDA-Public Use
  Company Number: NVSC2021CA166157

PATIENT
  Age: 73 Year
  Sex: Male

DRUGS (4)
  1. METHOTREXATE. [Suspect]
     Active Substance: METHOTREXATE
     Indication: PRODUCT USED FOR UNKNOWN INDICATION
     Dosage: (100 UNITS)QW
     Route: 058
     Dates: start: 2016
  2. FOLIC ACID. [Suspect]
     Active Substance: FOLIC ACID
     Indication: PRODUCT USED FOR UNKNOWN INDICATION
     Dosage: UNK, QW
     Route: 048
     Dates: start: 2016
  3. LEFLUNOMIDE. [Suspect]
     Active Substance: LEFLUNOMIDE
     Indication: PRODUCT USED FOR UNKNOWN INDICATION
     Dosage: UNK, QD
     Route: 048
     Dates: start: 2019
  4. TYLENOL ARTHRITIS PAIN [Concomitant]
     Active Substance: ACETAMINOPHEN
     Dosage: UNK, QID
     Route: 048
     Dates: start: 2016

REACTIONS (8)
  - Localised infection [Unknown]
  - Raynaud^s phenomenon [Unknown]
  - Wound [Unknown]
  - Gait disturbance [Unknown]
  - Arthritis [Unknown]
  - Dysstasia [Unknown]
  - General physical health deterioration [Unknown]
  - Pain [Unknown]

NARRATIVE: CASE EVENT DATE: 2016
